FAERS Safety Report 11319400 (Version 1)
Quarter: 2015Q3

REPORT INFORMATION
  Report Type: Spontaneous
  Country: CN (occurrence: CN)
  Receive Date: 20150729
  Receipt Date: 20150729
  Transmission Date: 20151125
  Serious: Yes (Hospitalization)
  Sender: FDA-Public Use
  Company Number: PHHY2015CN088410

PATIENT
  Age: 32 Year
  Sex: Female
  Weight: 52 kg

DRUGS (6)
  1. VITAMIN B1 NOS [Concomitant]
     Indication: NERVE INJURY
     Dosage: 10 MG, TID
     Route: 048
     Dates: start: 20150209, end: 20150227
  2. PREDNISONE. [Concomitant]
     Active Substance: PREDNISONE
     Indication: INFECTION
     Dosage: 30 MG, QD
     Route: 048
     Dates: start: 20150209, end: 20150227
  3. TEGRETOL [Suspect]
     Active Substance: CARBAMAZEPINE
     Indication: TONIC CONVULSION
     Dosage: 0.1 G, TID
     Route: 048
     Dates: start: 20150202
  4. METHYLCOBALAMIN [Concomitant]
     Active Substance: METHYLCOBALAMIN
     Indication: NERVE INJURY
     Dosage: 0.5 MG, TID
     Route: 048
     Dates: start: 20150209, end: 20150227
  5. TEGRETOL [Suspect]
     Active Substance: CARBAMAZEPINE
     Dosage: 0.1 G, TID
     Route: 048
     Dates: start: 20150216, end: 20150224
  6. TEGRETOL [Suspect]
     Active Substance: CARBAMAZEPINE
     Indication: MUSCLE SPASMS
     Dosage: 0.1G IN THE MORNING, NOON, AND 0.2 G AT NIGHT
     Route: 048
     Dates: start: 20150205

REACTIONS (3)
  - Rash [Not Recovered/Not Resolved]
  - Hepatic enzyme increased [Not Recovered/Not Resolved]
  - Hyperpyrexia [Not Recovered/Not Resolved]

NARRATIVE: CASE EVENT DATE: 20150224
